FAERS Safety Report 23691736 (Version 1)
Quarter: 2024Q2

REPORT INFORMATION
  Report Type: Spontaneous
  Country: US (occurrence: US)
  Receive Date: 20240401
  Receipt Date: 20240401
  Transmission Date: 20240716
  Serious: Yes (Other)
  Sender: FDA-Public Use
  Company Number: US-MYLANLABS-2024M1028788

PATIENT
  Age: 35 Year
  Sex: Female

DRUGS (2)
  1. HYDROCORTISONE [Suspect]
     Active Substance: HYDROCORTISONE
     Indication: Vaginal infection
     Dosage: UNK,  SUPPOSITORY
     Route: 067
  2. RITUXIMAB [Concomitant]
     Active Substance: RITUXIMAB
     Indication: Relapsing multiple sclerosis
     Dosage: 2 GRAM
     Route: 065

REACTIONS (2)
  - Drug ineffective [Unknown]
  - Off label use [Unknown]
